FAERS Safety Report 15685053 (Version 1)
Quarter: 2018Q4

REPORT INFORMATION
  Report Type: Spontaneous
  Country: CA (occurrence: CA)
  Receive Date: 20181204
  Receipt Date: 20181204
  Transmission Date: 20190205
  Serious: Yes (Other)
  Sender: FDA-Public Use
  Company Number: CA-PFIZER INC-2018490042

PATIENT
  Age: 45 Year
  Sex: Male

DRUGS (7)
  1. ELIQUIS [Concomitant]
     Active Substance: APIXABAN
     Indication: PULMONARY EMBOLISM
  2. LACTOBACILLUS RHAMNOSUS [Concomitant]
     Active Substance: LACTOBACILLUS RHAMNOSUS
     Dosage: UNK
  3. PREDNISONE. [Concomitant]
     Active Substance: PREDNISONE
     Dosage: 50 MG, 1X/DAY
     Route: 048
     Dates: start: 20181115
  4. METHYLPREDNISOLONE SODIUM SUCCINATE. [Suspect]
     Active Substance: METHYLPREDNISOLONE SODIUM SUCCINATE
     Dosage: 20 MG, 2X/DAY
     Route: 042
  5. INFLECTRA [INFLIXIMAB] [Concomitant]
     Indication: COLITIS ULCERATIVE
     Dosage: 300 MG, CYCLIC EVERY 0, 2, 6 WEEKS, THEN EVERY 8 WEEKS
     Route: 042
     Dates: start: 20181109
  6. PANTOLOC [PANTOPRAZOLE] [Concomitant]
     Dosage: 40 MG, 1X/DAY
     Route: 048
     Dates: start: 20181115
  7. FENTANYL. [Concomitant]
     Active Substance: FENTANYL
     Dosage: 100 UG, AS NEEDED EVERY 2 MINUTES
     Route: 042

REACTIONS (3)
  - Drug effect incomplete [Unknown]
  - Haematochezia [Unknown]
  - Pulmonary embolism [Unknown]

NARRATIVE: CASE EVENT DATE: 20181107
